FAERS Safety Report 16902244 (Version 1)
Quarter: 2019Q4

REPORT INFORMATION
  Report Type: Spontaneous
  Country: IN (occurrence: IN)
  Receive Date: 20191010
  Receipt Date: 20191010
  Transmission Date: 20200122
  Serious: Yes (Hospitalization, Other)
  Sender: FDA-Public Use
  Company Number: IN-LUPIN PHARMACEUTICALS INC.-2019-06453

PATIENT
  Age: 69 Year
  Sex: Male

DRUGS (6)
  1. RIFAMPIN. [Suspect]
     Active Substance: RIFAMPIN
     Indication: PULMONARY TUBERCULOSIS
     Dosage: UNK
     Route: 065
  2. ETHAMBUTOL [Concomitant]
     Active Substance: ETHAMBUTOL HYDROCHLORIDE
     Indication: PULMONARY TUBERCULOSIS
     Dosage: UNK (AS PER BODY WEIGHT)
     Route: 065
  3. PIRFENIDONE. [Interacting]
     Active Substance: PIRFENIDONE
     Indication: IDIOPATHIC PULMONARY FIBROSIS
     Dosage: 1200 MILLIGRAM, QD
     Route: 065
  4. PIRFENIDONE. [Interacting]
     Active Substance: PIRFENIDONE
     Dosage: 1800 MILLIGRAM, QD
     Route: 065
  5. ISONIAZID. [Concomitant]
     Active Substance: ISONIAZID
     Indication: PULMONARY TUBERCULOSIS
     Dosage: UNK (AS PER BODY WEIGHT)
     Route: 065
  6. PYRAZINAMIDE. [Concomitant]
     Active Substance: PYRAZINAMIDE
     Indication: PULMONARY TUBERCULOSIS
     Dosage: UNK (AS PER BODY WEIGHT)
     Route: 065

REACTIONS (3)
  - Drug interaction [Unknown]
  - Tuberculosis [Unknown]
  - Dermatitis exfoliative [Recovered/Resolved]
